FAERS Safety Report 14608405 (Version 11)
Quarter: 2019Q2

REPORT INFORMATION
  Report Type: Spontaneous
  Country: DE (occurrence: DE)
  Receive Date: 20180307
  Receipt Date: 20190619
  Transmission Date: 20190711
  Serious: Yes (Hospitalization, Disabling, Other)
  Sender: FDA-Public Use
  Company Number: DE-009507513-1803DEU001555

PATIENT
  Age: 44 Year
  Sex: Male
  Weight: 89 kg

DRUGS (4)
  1. PROSCAR [Suspect]
     Active Substance: FINASTERIDE
     Dosage: ONE FIFTH TABLET (TABLET SPLIT IN FIVE)
     Route: 048
     Dates: start: 1998, end: 2011
  2. PROSCAR [Suspect]
     Active Substance: FINASTERIDE
     Dosage: ONE FIFTH TABLET (TABLET SPLIT IN FIVE)
     Route: 048
     Dates: start: 19980101, end: 20110101
  3. PROPECIA [Suspect]
     Active Substance: FINASTERIDE
     Indication: ALOPECIA
     Dosage: DAILY DOSE: 1 MG MILLIGRAM(S) EVERY DAY
     Route: 048
     Dates: start: 1998, end: 2010
  4. PROPECIA [Suspect]
     Active Substance: FINASTERIDE
     Dosage: DAILY DOSE: 1 MG MILLIGRAM(S) EVERY DAY
     Route: 048
     Dates: start: 19980101, end: 20100101

REACTIONS (134)
  - Loss of libido [Not Recovered/Not Resolved]
  - Dyspepsia [Not Recovered/Not Resolved]
  - Dermatitis artefacta [Recovered/Resolved]
  - Urticaria [Not Recovered/Not Resolved]
  - Dehydroepiandrosterone decreased [Not Recovered/Not Resolved]
  - Dark circles under eyes [Not Recovered/Not Resolved]
  - Dizziness [Not Recovered/Not Resolved]
  - Lid sulcus deepened [Not Recovered/Not Resolved]
  - Angioedema [Recovered/Resolved]
  - Muscle atrophy [Not Recovered/Not Resolved]
  - Penile size reduced [Not Recovered/Not Resolved]
  - Anti-androgen withdrawal syndrome [Not Recovered/Not Resolved]
  - Testicular atrophy [Not Recovered/Not Resolved]
  - Face oedema [Not Recovered/Not Resolved]
  - Muscle twitching [Unknown]
  - Depression [Not Recovered/Not Resolved]
  - Hypersensitivity [Not Recovered/Not Resolved]
  - Chills [Not Recovered/Not Resolved]
  - Hypoaesthesia [Not Recovered/Not Resolved]
  - Diverticulum intestinal [Unknown]
  - Constipation [Unknown]
  - Disorder of orbit [Not Recovered/Not Resolved]
  - Wrong technique in product usage process [Unknown]
  - Tremor [Not Recovered/Not Resolved]
  - Gastrointestinal disorder [Not Recovered/Not Resolved]
  - Face oedema [Not Recovered/Not Resolved]
  - Feeling cold [Not Recovered/Not Resolved]
  - Food intolerance [Not Recovered/Not Resolved]
  - Autoimmune disorder [Unknown]
  - Muscle atrophy [Not Recovered/Not Resolved]
  - Histamine intolerance [Not Recovered/Not Resolved]
  - Benign tumour excision [Unknown]
  - Urinary incontinence [Not Recovered/Not Resolved]
  - Groin pain [Not Recovered/Not Resolved]
  - Headache [Not Recovered/Not Resolved]
  - Disturbance in attention [Not Recovered/Not Resolved]
  - Abdominal discomfort [Not Recovered/Not Resolved]
  - Pelvic organ injury [Not Recovered/Not Resolved]
  - Genital paraesthesia [Not Recovered/Not Resolved]
  - Spermatozoa abnormal [Not Recovered/Not Resolved]
  - Immune system disorder [Not Recovered/Not Resolved]
  - Adverse event [Not Recovered/Not Resolved]
  - Gastrointestinal disorder [Not Recovered/Not Resolved]
  - Eczema [Not Recovered/Not Resolved]
  - Genital burning sensation [Not Recovered/Not Resolved]
  - Hypogonadism male [Not Recovered/Not Resolved]
  - Dry eye [Not Recovered/Not Resolved]
  - Abdominal discomfort [Not Recovered/Not Resolved]
  - Lid sulcus deepened [Not Recovered/Not Resolved]
  - Hypersensitivity [Not Recovered/Not Resolved]
  - Feeling abnormal [Not Recovered/Not Resolved]
  - Abnormal faeces [Not Recovered/Not Resolved]
  - Dry skin [Not Recovered/Not Resolved]
  - Groin pain [Not Recovered/Not Resolved]
  - Prostatic pain [Not Recovered/Not Resolved]
  - Suicidal ideation [Unknown]
  - Genital burning sensation [Not Recovered/Not Resolved]
  - Testicular atrophy [Not Recovered/Not Resolved]
  - Gastrointestinal injury [Not Recovered/Not Resolved]
  - Abdominal pain [Not Recovered/Not Resolved]
  - Perineal pain [Not Recovered/Not Resolved]
  - Gastritis [Unknown]
  - Insomnia [Not Recovered/Not Resolved]
  - Dyschezia [Not Recovered/Not Resolved]
  - Hypothalamo-pituitary disorder [Not Recovered/Not Resolved]
  - Hypoaesthesia [Unknown]
  - Panic attack [Not Recovered/Not Resolved]
  - Myalgia [Not Recovered/Not Resolved]
  - Feeling cold [Not Recovered/Not Resolved]
  - Erectile dysfunction [Not Recovered/Not Resolved]
  - Hot flush [Not Recovered/Not Resolved]
  - Feeling hot [Unknown]
  - Pain [Not Recovered/Not Resolved]
  - Somatic symptom disorder [Unknown]
  - Autoimmune disorder [Not Recovered/Not Resolved]
  - Confusional state [Not Recovered/Not Resolved]
  - General physical health deterioration [Not Recovered/Not Resolved]
  - Metabolic disorder [Unknown]
  - Steatorrhoea [Not Recovered/Not Resolved]
  - Tinnitus [Not Recovered/Not Resolved]
  - Myalgia [Not Recovered/Not Resolved]
  - Testicular pain [Not Recovered/Not Resolved]
  - Dizziness [Not Recovered/Not Resolved]
  - Loss of libido [Not Recovered/Not Resolved]
  - Depression [Not Recovered/Not Resolved]
  - Pelvic pain [Not Recovered/Not Resolved]
  - Benign tumour excision [Unknown]
  - Anti-androgen withdrawal syndrome [Not Recovered/Not Resolved]
  - Food allergy [Not Recovered/Not Resolved]
  - Eczema [Not Recovered/Not Resolved]
  - Erectile dysfunction [Not Recovered/Not Resolved]
  - Hypogonadism male [Not Recovered/Not Resolved]
  - Aphasia [Unknown]
  - Diarrhoea [Not Recovered/Not Resolved]
  - Back pain [Not Recovered/Not Resolved]
  - Androgen deficiency [Not Recovered/Not Resolved]
  - Amnesia [Not Recovered/Not Resolved]
  - Dyspepsia [Not Recovered/Not Resolved]
  - Diarrhoea [Not Recovered/Not Resolved]
  - Anaphylactic shock [Unknown]
  - Mucosal dryness [Not Recovered/Not Resolved]
  - Androgen deficiency [Not Recovered/Not Resolved]
  - Abdominal pain lower [Unknown]
  - Hypertension [Unknown]
  - Testicular pain [Not Recovered/Not Resolved]
  - Weight increased [Unknown]
  - Ocular discomfort [Not Recovered/Not Resolved]
  - Secondary hypogonadism [Unknown]
  - Quality of life decreased [Unknown]
  - Histamine intolerance [Not Recovered/Not Resolved]
  - Blood testosterone decreased [Not Recovered/Not Resolved]
  - Dry eye [Not Recovered/Not Resolved]
  - Sensory disturbance [Not Recovered/Not Resolved]
  - Urticaria [Not Recovered/Not Resolved]
  - Suicidal ideation [Unknown]
  - Penile size reduced [Not Recovered/Not Resolved]
  - Disturbance in attention [Not Recovered/Not Resolved]
  - Immune system disorder [Not Recovered/Not Resolved]
  - Adverse event [Unknown]
  - Restlessness [Unknown]
  - Feeling abnormal [Not Recovered/Not Resolved]
  - Arthralgia [Not Recovered/Not Resolved]
  - Gastritis [Not Recovered/Not Resolved]
  - Bowel movement irregularity [Unknown]
  - Somatic symptom disorder [Not Recovered/Not Resolved]
  - Skin disorder [Not Recovered/Not Resolved]
  - Hypopituitarism [Not Recovered/Not Resolved]
  - Brain oedema [Not Recovered/Not Resolved]
  - Abnormal faeces [Not Recovered/Not Resolved]
  - Tremor [Not Recovered/Not Resolved]
  - Steatorrhoea [Not Recovered/Not Resolved]
  - Chills [Not Recovered/Not Resolved]
  - Ocular discomfort [Not Recovered/Not Resolved]
  - Abdominal pain [Not Recovered/Not Resolved]

NARRATIVE: CASE EVENT DATE: 2009
